FAERS Safety Report 17925923 (Version 1)
Quarter: 2020Q2

REPORT INFORMATION
  Report Type: Report from Study
  Country: US (occurrence: US)
  Receive Date: 20200623
  Receipt Date: 20200623
  Transmission Date: 20200714
  Serious: Yes (Other)
  Sender: FDA-Public Use
  Company Number: US-ROCHE-2619537

PATIENT

DRUGS (5)
  1. CARBOPLATIN. [Suspect]
     Active Substance: CARBOPLATIN
     Indication: GLIOMA
     Dosage: 5 OR 6 AUC IV ON DAY 1 OF A 28-DAY CYCLE OR?2 OR 3 AUC IV ON DAYS 1 AND 15 OF A 28-DAY CYCLE
     Route: 042
  2. BEVACIZUMAB. [Suspect]
     Active Substance: BEVACIZUMAB
     Indication: GLIOMA
     Dosage: DAYS 1 AND 15 EVERY 28 DAYS
     Route: 042
  3. TEMOZOLOMIDE. [Suspect]
     Active Substance: TEMOZOLOMIDE
     Indication: GLIOMA
     Dosage: DAYS 1-21 EVERY 28 DAYS
     Route: 048
  4. ETOPOSIDE. [Suspect]
     Active Substance: ETOPOSIDE
     Indication: GLIOMA
     Route: 065
  5. DEXAMETHASONE. [Concomitant]
     Active Substance: DEXAMETHASONE
     Indication: PROPHYLAXIS
     Route: 048

REACTIONS (10)
  - Asthenia [Unknown]
  - Seizure [Unknown]
  - Brain oedema [Unknown]
  - Thrombocytopenia [Unknown]
  - Mental status changes [Unknown]
  - Pulmonary embolism [Unknown]
  - Headache [Unknown]
  - Vomiting [Unknown]
  - Tumour haemorrhage [Unknown]
  - Nausea [Unknown]
